FAERS Safety Report 7815390-7 (Version None)
Quarter: 2011Q4

REPORT INFORMATION
  Report Type: 
  Country: None (occurrence: None)
  Receive Date: 20111014
  Receipt Date: 20110929
  Transmission Date: 20120403
  Serious: Yes (Other)
  Sender: FDA-Public Use
  Company Number: FR-ROCHE-1001156

PATIENT
  Sex: Male
  Weight: 70 kg

DRUGS (6)
  1. VEMURAFENIB [Suspect]
     Indication: METASTATIC MALIGNANT MELANOMA
     Route: 048
     Dates: start: 20110706
  2. XANAX [Concomitant]
  3. RABEPRAZOLE SODIUM [Concomitant]
     Dosage: STRENGTH 20
  4. IMOVANE [Concomitant]
  5. PREDNISONE [Concomitant]
  6. DESLORATADINE [Concomitant]

REACTIONS (2)
  - RECTAL HAEMORRHAGE [None]
  - COLITIS ISCHAEMIC [None]
